FAERS Safety Report 4820675-2 (Version None)
Quarter: 2005Q4

REPORT INFORMATION
  Report Type: 
  Country: None (occurrence: None)
  Receive Date: 20051104
  Receipt Date: 20051021
  Transmission Date: 20060501
  Serious: Yes (Hospitalization)
  Sender: FDA-Public Use
  Company Number: FR-JNJFOC-20050606531

PATIENT
  Age: 32 Year
  Sex: Female

DRUGS (13)
  1. EPITOMAX [Suspect]
     Indication: EPILEPSY
     Route: 048
  2. ALPRAZOLAM [Suspect]
     Dosage: 1 DOSE = 1 TABLET
     Route: 065
  3. ALPRAZOLAM [Suspect]
     Indication: DRUG USE FOR UNKNOWN INDICATION
     Route: 065
  4. LYSANXIA [Suspect]
     Dosage: 1 DOSE = 1 TABLET
     Route: 065
  5. LYSANXIA [Suspect]
     Indication: DRUG USE FOR UNKNOWN INDICATION
     Route: 065
  6. RIVOTRIL [Suspect]
     Route: 065
  7. RIVOTRIL [Suspect]
     Indication: DRUG USE FOR UNKNOWN INDICATION
     Route: 065
  8. SKENAN [Suspect]
     Dosage: 1 DOSE = 1 TABLET
     Route: 065
  9. SKENAN [Suspect]
     Indication: DRUG USE FOR UNKNOWN INDICATION
     Route: 065
  10. ANAFRANIL [Concomitant]
     Indication: DRUG USE FOR UNKNOWN INDICATION
     Route: 065
  11. UNSPECIFIED ORAL CONTRACEPTIVE [Concomitant]
     Route: 065
  12. ATEPADENE [Concomitant]
     Route: 065
  13. ATEPADENE [Concomitant]
     Route: 065

REACTIONS (17)
  - AGITATION [None]
  - BLOOD PH INCREASED [None]
  - CEREBROVASCULAR ACCIDENT [None]
  - COMA [None]
  - ECCHYMOSIS [None]
  - EYELID PTOSIS [None]
  - HAEMATOCRIT DECREASED [None]
  - HAEMOGLOBIN DECREASED [None]
  - HEMIPLEGIA [None]
  - MENTAL DISORDER [None]
  - MULTIPLE DRUG OVERDOSE [None]
  - MYDRIASIS [None]
  - NUCLEAR MAGNETIC RESONANCE IMAGING BRAIN ABNORMAL [None]
  - PLATELET COUNT DECREASED [None]
  - PULMONARY EMBOLISM [None]
  - SINUS BRADYCARDIA [None]
  - VENTRICULAR DYSFUNCTION [None]
